FAERS Safety Report 6077215-2 (Version None)
Quarter: 2009Q1

REPORT INFORMATION
  Report Type: 
  Country: None (occurrence: None)
  Receive Date: 20090211
  Receipt Date: 20090202
  Transmission Date: 20090719
  Serious: Yes (Hospitalization, Other)
  Sender: FDA-Public Use
  Company Number: 1000003680

PATIENT
  Age: 34 Year
  Sex: Female
  Weight: 60 kg

DRUGS (3)
  1. ESCITALOPRAM OXALATE [Suspect]
     Dosage: 1280 MG, ONCE, ORAL
     Route: 048
     Dates: start: 20090120, end: 20090120
  2. SEROQUEL [Suspect]
     Dosage: ORAL
     Route: 048
     Dates: start: 20090120, end: 20090120
  3. ALCOHOL [Suspect]
     Dosage: ORAL
     Route: 048
     Dates: start: 20090120, end: 20090120

REACTIONS (6)
  - COMA [None]
  - CONVULSION [None]
  - DIARRHOEA [None]
  - INTENTIONAL OVERDOSE [None]
  - MYDRIASIS [None]
  - SUICIDE ATTEMPT [None]
